FAERS Safety Report 10236949 (Version 2)
Quarter: 2014Q2

REPORT INFORMATION
  Report Type: Spontaneous
  Country: DE (occurrence: DE)
  Receive Date: 20140613
  Receipt Date: 20140613
  Transmission Date: 20141212
  Serious: Yes (Other)
  Sender: FDA-Public Use
  Company Number: DE-BAYER-2014-079087

PATIENT
  Age: 74 Year
  Sex: Female
  Weight: 41 kg

DRUGS (9)
  1. STIVARGA [Suspect]
     Indication: SMALL INTESTINE ADENOCARCINOMA
     Dosage: UNK
     Dates: start: 201402
  2. STIVARGA [Suspect]
     Indication: SMALL INTESTINE ADENOCARCINOMA
     Dosage: 3 TABLETS
  3. STIVARGA [Suspect]
     Indication: SMALL INTESTINE ADENOCARCINOMA
     Dosage: 2 TABLETS
     Dates: start: 20140319, end: 20140408
  4. STIVARGA [Suspect]
     Indication: SMALL INTESTINE ADENOCARCINOMA
     Dosage: 2 TABLETS
     Dates: start: 20140416, end: 20140506
  5. DEXAMETHASON [Concomitant]
     Dosage: 2 MG, QD
  6. AMLODIPIN [Concomitant]
     Dosage: 10 MG, UNK
  7. LOPERAMID [Concomitant]
     Dosage: UNK
  8. IBUPROFEN [Concomitant]
     Dosage: UNK
  9. VALDECOXIB [Concomitant]

REACTIONS (11)
  - Metastases to lymph nodes [None]
  - Jugular vein thrombosis [None]
  - Tumour marker increased [Recovering/Resolving]
  - Palmar-plantar erythrodysaesthesia syndrome [Recovering/Resolving]
  - Dysphonia [Recovering/Resolving]
  - Diarrhoea [Recovering/Resolving]
  - Decreased appetite [None]
  - Weight decreased [Recovering/Resolving]
  - Fatigue [Recovering/Resolving]
  - Somnolence [Recovering/Resolving]
  - Stomatitis [Recovering/Resolving]
